FAERS Safety Report 7071490-3 (Version None)
Quarter: 2010Q4

REPORT INFORMATION
  Report Type: 
  Country: None (occurrence: None)
  Receive Date: 20101029
  Receipt Date: 20091109
  Transmission Date: 20110411
  Serious: No
  Sender: FDA-Public Use
  Company Number: A0806770A

PATIENT
  Age: 70 Year
  Sex: Female

DRUGS (7)
  1. ADVAIR DISKUS 100/50 [Suspect]
     Indication: ASTHMA
     Route: 055
     Dates: start: 20080301
  2. FLUTICASONE NASAL SPRAY [Concomitant]
  3. TRICOR [Concomitant]
  4. METHADONE [Concomitant]
  5. ASPIRIN [Concomitant]
  6. FLUOXETINE [Concomitant]
  7. MIACALCIN [Concomitant]

REACTIONS (4)
  - DYSPNOEA [None]
  - FATIGUE [None]
  - INSOMNIA [None]
  - PRODUCT QUALITY ISSUE [None]
